FAERS Safety Report 8206434-1 (Version None)
Quarter: 2012Q1

REPORT INFORMATION
  Report Type: 
  Country: None (occurrence: None)
  Receive Date: 20120313
  Receipt Date: 20120309
  Transmission Date: 20120608
  Serious: Yes (Other)
  Sender: FDA-Public Use
  Company Number: PHHY2012ES008293

PATIENT
  Age: 58 Year
  Sex: Female

DRUGS (4)
  1. ZOMETA [Suspect]
     Dosage: 4 MG, EVERY 21 DAYS
     Route: 042
     Dates: start: 20090701, end: 20101108
  2. ALPRAZOLAM [Concomitant]
  3. COROPRES [Concomitant]
  4. ZOMETA [Suspect]
     Indication: METASTASES TO BONE
     Dosage: 4 MG, EVERY 21 DAYS
     Route: 042
     Dates: start: 20061101, end: 20070601

REACTIONS (2)
  - PAIN [None]
  - OSTEONECROSIS OF JAW [None]
